FAERS Safety Report 16135408 (Version 1)
Quarter: 2019Q1

REPORT INFORMATION
  Report Type: Report from Study
  Country: US (occurrence: US)
  Receive Date: 20190329
  Receipt Date: 20190329
  Transmission Date: 20190418
  Serious: Yes (Other)
  Sender: FDA-Public Use
  Company Number: US-JNJFOC-20190311399

PATIENT
  Age: 89 Year
  Sex: Female

DRUGS (12)
  1. ANASTROZOLE. [Concomitant]
     Active Substance: ANASTROZOLE
  2. LEVOTHYROXINE. [Concomitant]
     Active Substance: LEVOTHYROXINE
  3. MULTIVITAMINS [Concomitant]
     Active Substance: VITAMINS
  4. IMBRUVICA [Suspect]
     Active Substance: IBRUTINIB
     Indication: LYMPHOCYTIC LEUKAEMIA
     Route: 048
     Dates: start: 20190117
  5. ASPIRIN. [Concomitant]
     Active Substance: ASPIRIN
  6. LORATADINE. [Concomitant]
     Active Substance: LORATADINE
  7. MICONAZOLE. [Concomitant]
     Active Substance: MICONAZOLE
  8. RANITIDINE. [Concomitant]
     Active Substance: RANITIDINE
  9. XARELTO [Concomitant]
     Active Substance: RIVAROXABAN
     Indication: ANTICOAGULANT THERAPY
     Route: 065
  10. XARELTO [Concomitant]
     Active Substance: RIVAROXABAN
     Indication: ANTICOAGULANT THERAPY
     Route: 065
  11. TYLENOL [Concomitant]
     Active Substance: ACETAMINOPHEN
  12. VITAMIN D3 [Concomitant]
     Active Substance: CHOLECALCIFEROL

REACTIONS (3)
  - Eye haemorrhage [Recovered/Resolved]
  - Cough [Unknown]
  - Eye injury [Unknown]

NARRATIVE: CASE EVENT DATE: 201903
